FAERS Safety Report 8775504 (Version 2)
Quarter: 2012Q4

REPORT INFORMATION
  Report Type: 
  Country: CA (occurrence: CA)
  Receive Date: 20120910
  Receipt Date: 20121214
  Transmission Date: 20130627
  Serious: Yes (Other)
  Sender: FDA-Public Use
  Company Number: CA-SHIRE-ALL1-2012-04113

PATIENT
  Age: 52 None
  Sex: Male
  Weight: 146 kg

DRUGS (3)
  1. MEZAVANT [Suspect]
     Indication: COLITIS ULCERATIVE
     Dosage: 1.0 g, 1x/day:qd
     Route: 048
     Dates: start: 20120423, end: 20120905
  2. CIALIS [Concomitant]
     Indication: PRODUCT USED FOR UNKNOWN INDICATION
     Dosage: 20 mg, As req^d
     Route: 048
  3. VALACYCLOVIR HCL [Concomitant]
     Indication: ORAL HERPES
     Dosage: 500 mg, 2x/day:bid
     Route: 065
     Dates: start: 20120815, end: 20120818

REACTIONS (2)
  - Oedema peripheral [Recovered/Resolved]
  - Abnormal weight gain [Unknown]
